FAERS Safety Report 4924015-X (Version None)
Quarter: 2006Q1

REPORT INFORMATION
  Report Type: 
  Country: None (occurrence: None)
  Receive Date: 20060227
  Receipt Date: 20051026
  Transmission Date: 20060701
  Serious: Yes (Hospitalization, Disabling)
  Sender: FDA-Public Use
  Company Number: US-MERCK-0510USA09172

PATIENT
  Age: 41 Year
  Sex: Male
  Weight: 100 kg

DRUGS (13)
  1. VIOXX [Suspect]
     Indication: ARTHRALGIA
     Route: 048
     Dates: start: 20001218, end: 20040901
  2. VIOXX [Suspect]
     Route: 048
     Dates: start: 20001201, end: 20040924
  3. VIOXX [Suspect]
     Route: 048
     Dates: start: 20001218, end: 20040901
  4. VIOXX [Suspect]
     Route: 048
     Dates: start: 20001201, end: 20040924
  5. ASPIRIN [Concomitant]
     Route: 065
  6. PLAVIX [Concomitant]
     Indication: ANTICOAGULANT THERAPY
     Route: 065
     Dates: start: 20000101, end: 20050101
  7. TRICOR [Concomitant]
     Indication: CARDIAC DISORDER
     Route: 065
     Dates: start: 20000101, end: 20050101
  8. TRICOR [Concomitant]
     Indication: BLOOD CHOLESTEROL
     Route: 065
     Dates: start: 20000101, end: 20050101
  9. VIAGRA [Concomitant]
     Route: 065
  10. CIALIS [Concomitant]
     Route: 065
  11. NEXIUM [Concomitant]
     Indication: GASTROOESOPHAGEAL REFLUX DISEASE
     Route: 065
  12. ADVIL [Concomitant]
     Indication: PAIN
     Route: 065
  13. TYLENOL (CAPLET) [Concomitant]
     Indication: PAIN
     Route: 065

REACTIONS (5)
  - BLOOD CHOLESTEROL INCREASED [None]
  - CHEST PAIN [None]
  - DYSPEPSIA [None]
  - MYOCARDIAL INFARCTION [None]
  - OVERDOSE [None]
